FAERS Safety Report 8623306 (Version 2)
Quarter: 2013Q2

REPORT INFORMATION
  Report Type: Report from Study
  Country: MX (occurrence: MX)
  Receive Date: 20120620
  Receipt Date: 20130506
  Transmission Date: 20140414
  Serious: Yes (Death, Other)
  Sender: FDA-Public Use
  Company Number: PHHY2012MX052174

PATIENT
  Age: 77 Year
  Sex: Female

DRUGS (4)
  1. ACLASTA [Suspect]
     Indication: OSTEOPOROSIS
     Dosage: 5 MG/100 ML, PER YEAR
     Route: 042
     Dates: start: 2008
  2. ACLASTA [Suspect]
     Dosage: 5 MG/100 ML PER YEAR
     Route: 042
  3. ACLASTA [Suspect]
     Dosage: 5 MG/100 ML PER YEAR
     Route: 042
  4. ACLASTA [Suspect]
     Dosage: 5 MG/100ML, PER YEAR
     Route: 042
     Dates: start: 2011

REACTIONS (9)
  - Pulmonary embolism [Fatal]
  - Fall [Unknown]
  - Hip fracture [Unknown]
  - Spinal disorder [Unknown]
  - Lung disorder [Unknown]
  - Cardiac disorder [Unknown]
  - Concomitant disease progression [Unknown]
  - Scoliosis [Unknown]
  - Bone pain [Recovered/Resolved]
